FAERS Safety Report 17033496 (Version 1)
Quarter: 2019Q4

REPORT INFORMATION
  Report Type: Spontaneous
  Country: US (occurrence: US)
  Receive Date: 20191114
  Receipt Date: 20191114
  Transmission Date: 20200122
  Serious: No
  Sender: FDA-Public Use
  Company Number: US-009507513-1910USA012783

PATIENT
  Age: 53 Year
  Sex: Male

DRUGS (3)
  1. REBETOL [Suspect]
     Active Substance: RIBAVIRIN
     Indication: HEPATITIS C
     Dosage: UNK
     Route: 048
  2. SOFOSBUVIR [Suspect]
     Active Substance: SOFOSBUVIR
     Dosage: UNK
  3. VELPATASVIR [Suspect]
     Active Substance: VELPATASVIR
     Dosage: UNK

REACTIONS (1)
  - Off label use [Unknown]
